FAERS Safety Report 9405567 (Version 1)
Quarter: 2013Q3

REPORT INFORMATION
  Report Type: Report from Study
  Country: UG (occurrence: UG)
  Receive Date: 20130717
  Receipt Date: 20130717
  Transmission Date: 20140515
  Serious: Yes (Death)
  Sender: FDA-Public Use
  Company Number: UG-009507513-1307UGA005441

PATIENT
  Age: 31 Year
  Sex: Female

DRUGS (3)
  1. RALTEGRAVIR POTASSIUM [Suspect]
     Indication: HIV INFECTION
     Dosage: UNK
     Route: 048
     Dates: start: 20110426, end: 20110912
  2. ALUVIA [Suspect]
     Dosage: UNK
     Dates: start: 20110426, end: 20110912
  3. COTRIMAZOLE [Concomitant]
     Dosage: UNK
     Dates: start: 20060316, end: 20110912

REACTIONS (4)
  - Death [Fatal]
  - Anaemia [Fatal]
  - Diarrhoea [Fatal]
  - Vomiting [Fatal]
